FAERS Safety Report 13447403 (Version 3)
Quarter: 2018Q4

REPORT INFORMATION
  Report Type: Spontaneous
  Country: US (occurrence: US)
  Receive Date: 20170417
  Receipt Date: 20181204
  Transmission Date: 20190204
  Serious: Yes (Hospitalization)
  Sender: FDA-Public Use
  Company Number: US-BAYER-2017-067474

PATIENT
  Age: 33 Year
  Sex: Female
  Weight: 72.57 kg

DRUGS (1)
  1. SKYLA [Suspect]
     Active Substance: LEVONORGESTREL
     Indication: CONTRACEPTION
     Dosage: 14 MCG/24HR, CONT
     Route: 015
     Dates: start: 20150511, end: 20170508

REACTIONS (4)
  - Device difficult to use [None]
  - Embedded device [Recovered/Resolved]
  - Device breakage [Recovered/Resolved]
  - Medical device discomfort [Recovered/Resolved]

NARRATIVE: CASE EVENT DATE: 20170223
